FAERS Safety Report 6482725-X (Version None)
Quarter: 2009Q4

REPORT INFORMATION
  Report Type: 
  Country: None (occurrence: None)
  Receive Date: 20091203
  Receipt Date: 20091118
  Transmission Date: 20100525
  Serious: Yes (Other)
  Sender: FDA-Public Use
  Company Number: 2009AL007466

PATIENT
  Age: 40 Year
  Sex: Male

DRUGS (4)
  1. TRAMADOL HYDROCHLORIDE [Suspect]
     Indication: POSTOPERATIVE ANALGESIA
     Dosage: 50MG;QID;PO
     Route: 048
     Dates: start: 20070117, end: 20070118
  2. RANITIDINE [Concomitant]
  3. LACTULOSE [Concomitant]
  4. PARACETAMOL [Concomitant]

REACTIONS (1)
  - FACIAL PALSY [None]
